FAERS Safety Report 14034861 (Version 2)
Quarter: 2017Q4

REPORT INFORMATION
  Report Type: Spontaneous
  Country: ES (occurrence: ES)
  Receive Date: 20171003
  Receipt Date: 20171006
  Transmission Date: 20180321
  Serious: Yes (Other)
  Sender: FDA-Public Use
  Company Number: ES-SA-2017SA176047

PATIENT
  Age: 35 Year
  Sex: Female

DRUGS (1)
  1. LEMTRADA [Suspect]
     Active Substance: ALEMTUZUMAB
     Route: 041
     Dates: start: 20170918, end: 20170918

REACTIONS (4)
  - Fibrin D dimer increased [Recovered/Resolved]
  - Pain in extremity [Not Recovered/Not Resolved]
  - Peripheral swelling [Not Recovered/Not Resolved]
  - Thrombophlebitis [Recovered/Resolved]

NARRATIVE: CASE EVENT DATE: 20170918
